FAERS Safety Report 19091031 (Version 1)
Quarter: 2021Q2

REPORT INFORMATION
  Report Type: Other
  Country: CN (occurrence: CN)
  Receive Date: 20210405
  Receipt Date: 20210405
  Transmission Date: 20210717
  Serious: Yes (Other)
  Sender: FDA-Public Use
  Company Number: CN-ROCHE-2041695

PATIENT
  Sex: Male
  Weight: 53 kg

DRUGS (1)
  1. AVASTIN [Suspect]
     Active Substance: BEVACIZUMAB
     Indication: RECTAL CANCER
     Dosage: FORM OF ADMIN. TEXT  100MG
     Route: 041
     Dates: start: 20170716, end: 20210122

REACTIONS (6)
  - Nasopharyngitis [Unknown]
  - Drug resistance [Unknown]
  - Drug intolerance [Unknown]
  - Neoplasm progression [Unknown]
  - Anal cancer metastatic [Not Recovered/Not Resolved]
  - Pain in extremity [Unknown]
